FAERS Safety Report 21369962 (Version 1)
Quarter: 2022Q3

REPORT INFORMATION
  Report Type: Spontaneous
  Country: JP (occurrence: None)
  Receive Date: 20220923
  Receipt Date: 20220923
  Transmission Date: 20221026
  Serious: Yes (Other)
  Sender: FDA-Public Use
  Company Number: 2022A305100

PATIENT
  Sex: Female

DRUGS (1)
  1. IMFINZI [Suspect]
     Active Substance: DURVALUMAB
     Indication: Non-small cell lung cancer stage III
     Route: 041
     Dates: start: 20220126, end: 20220401

REACTIONS (2)
  - Pneumonitis [Recovering/Resolving]
  - Spinal compression fracture [Unknown]

NARRATIVE: CASE EVENT DATE: 20210203
